FAERS Safety Report 6420521-X (Version None)
Quarter: 2009Q4

REPORT INFORMATION
  Report Type: 
  Country: None (occurrence: None)
  Receive Date: 20091027
  Receipt Date: 20091016
  Transmission Date: 20100525
  Serious: Yes (Death, Other)
  Sender: FDA-Public Use
  Company Number: 2009AL006702

PATIENT
  Sex: Female

DRUGS (2)
  1. VINORELBINE [Suspect]
     Indication: BREAST CANCER
     Dosage: UNKNOWN; UNK; IV
     Route: 042
  2. SODIUM CHLORIDE [Concomitant]

REACTIONS (1)
  - DYSPNOEA [None]
